FAERS Safety Report 8099366-3 (Version None)
Quarter: 2012Q1

REPORT INFORMATION
  Report Type: 
  Country: None (occurrence: None)
  Receive Date: 20120129
  Receipt Date: 20110914
  Transmission Date: 20120608
  Serious: No
  Sender: FDA-Public Use
  Company Number: US-ABBOTT-11P-163-0855000-00

PATIENT
  Age: 48 Year
  Sex: Female

DRUGS (3)
  1. HUMIRA [Suspect]
     Indication: RHEUMATOID ARTHRITIS
     Dates: start: 20110801
  2. LORTAB [Concomitant]
     Indication: PAIN
     Dosage: PRN
  3. MOTRIN [Concomitant]
     Indication: PAIN
     Dosage: PRN

REACTIONS (2)
  - DRY SKIN [None]
  - INJECTION SITE URTICARIA [None]
